FAERS Safety Report 9728326 (Version 1)
Quarter: 2013Q4

REPORT INFORMATION
  Report Type: Spontaneous
  Country: US (occurrence: US)
  Receive Date: 20131204
  Receipt Date: 20131204
  Transmission Date: 20140711
  Serious: Yes (Life-Threatening, Hospitalization)
  Sender: FDA-Public Use
  Company Number: US-BAYER-2013-144727

PATIENT
  Age: 77 Year
  Sex: Female
  Weight: 75.75 kg

DRUGS (14)
  1. XARELTO [Suspect]
     Indication: CEREBROVASCULAR ACCIDENT PROPHYLAXIS
     Dosage: 20 MG, QD
     Route: 048
  2. XARELTO [Suspect]
     Indication: ATRIAL FIBRILLATION
  3. ACETYLSALICYLIC ACID({=100 MG) [Suspect]
     Indication: PRODUCT USED FOR UNKNOWN INDICATION
     Dosage: UNK
     Route: 065
  4. METOPROLOL [Concomitant]
     Dosage: UNK
     Route: 065
  5. ALLOPURINOL [Concomitant]
     Dosage: UNK
     Route: 065
  6. METFORMIN [Concomitant]
     Dosage: UNK
     Route: 065
  7. TRAMADOL [Concomitant]
     Dosage: UNK
     Route: 065
  8. FUROSEMIDE [Concomitant]
     Dosage: UNK
     Route: 065
  9. AMIODARONE [Concomitant]
     Dosage: UNK
     Route: 065
  10. CLONIDINE [Concomitant]
     Dosage: UNK
     Route: 065
  11. ATORVASTATIN [Concomitant]
     Dosage: UNK
     Route: 065
  12. PANTOPRAZOLE [Concomitant]
     Dosage: UNK
     Route: 065
  13. AMLODIPINE [Concomitant]
     Dosage: UNK
     Route: 065
  14. ROPINIROLE [Concomitant]
     Dosage: UNK
     Route: 065

REACTIONS (4)
  - Haematuria [Unknown]
  - Haemoptysis [Unknown]
  - Epistaxis [Unknown]
  - International normalised ratio increased [Recovered/Resolved]
